FAERS Safety Report 5292697-1 (Version None)
Quarter: 2007Q2

REPORT INFORMATION
  Report Type: 
  Country: None (occurrence: None)
  Receive Date: 20070404
  Receipt Date: 20070330
  Transmission Date: 20071010
  Serious: Yes (Other)
  Sender: FDA-Public Use
  Company Number: SP01194

PATIENT
  Age: 22 Year
  Sex: Male
  Weight: 108.8633 kg

DRUGS (12)
  1. COLAZAL [Suspect]
     Indication: CROHN'S DISEASE
     Dosage: THREE 750MG CAPSULES, THREE TIMES DAILY (750 MG, 3 IN 1 D), ORAL
     Route: 048
     Dates: start: 20050729
  2. ASACOL [Suspect]
     Dates: start: 20050201, end: 20050101
  3. VITAMINS [Concomitant]
  4. PROTONIX [Concomitant]
  5. MERCAPTOPURINE [Concomitant]
  6. REMICADE (INJECTION FOR INFUSION) [Concomitant]
  7. ZANTAC [Concomitant]
  8. LEXAPRO [Concomitant]
  9. VITAMIN D [Concomitant]
  10. PERCOCET [Concomitant]
  11. ALBUTEROL (INHALANT) [Concomitant]
  12. FLONASE [Concomitant]

REACTIONS (7)
  - ANXIETY [None]
  - APHASIA [None]
  - HEADACHE [None]
  - HYPOCALCAEMIA [None]
  - RESPIRATORY TRACT INFECTION [None]
  - TREMOR [None]
  - VOMITING [None]
